FAERS Safety Report 8173011-0 (Version None)
Quarter: 2012Q1

REPORT INFORMATION
  Report Type: 
  Country: None (occurrence: None)
  Receive Date: 20120229
  Receipt Date: 20120221
  Transmission Date: 20120608
  Serious: Yes (Other)
  Sender: FDA-Public Use
  Company Number: US-BAYER-2011-029282

PATIENT
  Age: 22 Year
  Sex: Female
  Weight: 79 kg

DRUGS (10)
  1. YAZ [Suspect]
     Indication: CONTRACEPTION
     Dosage: UNK
     Route: 048
     Dates: start: 20080101, end: 20090101
  2. OXYCODONE HCL AND ACETAMINOPHEN [Concomitant]
     Dosage: 5 MG, UNK
     Route: 048
     Dates: start: 20090218
  3. ALBUTEROL [Concomitant]
     Dosage: UNK
     Dates: start: 20090421
  4. OXYCODONE HCL AND ACETAMINOPHEN [Concomitant]
     Dosage: 325 MG, UNK
     Route: 048
     Dates: start: 20090218
  5. ONDANSETRON [Concomitant]
     Dosage: 4 MG, UNK
     Route: 048
     Dates: start: 20090218
  6. FLOMAX [Concomitant]
     Dosage: 0.4 MG, UNK
     Route: 048
     Dates: start: 20090201
  7. RISPERIDONE [Concomitant]
     Dosage: 0.5 MG, UNK
     Route: 048
     Dates: start: 20090211
  8. CITALOPRAM [Concomitant]
     Dosage: 20 MG, UNK
     Route: 048
     Dates: start: 20090211
  9. CROMOLYN SODIUM [Concomitant]
     Dosage: UNK
     Dates: start: 20090421
  10. CEFUROXIME [Concomitant]
     Dosage: 500 MG, UNK
     Route: 048
     Dates: start: 20090127

REACTIONS (5)
  - CHOLELITHIASIS [None]
  - CHOLECYSTITIS CHRONIC [None]
  - INJURY [None]
  - PERIPHERAL NERVE INJURY [None]
  - PAIN [None]
